FAERS Safety Report 14390969 (Version 2)
Quarter: 2018Q1

REPORT INFORMATION
  Report Type: Spontaneous
  Country: US (occurrence: US)
  Receive Date: 20180116
  Receipt Date: 20180308
  Transmission Date: 20180509
  Serious: Yes (Hospitalization, Other)
  Sender: FDA-Public Use
  Company Number: US-ASTELLAS-2018US002015

PATIENT
  Sex: Female

DRUGS (4)
  1. MYFORTIC [Concomitant]
     Active Substance: MYCOPHENOLATE SODIUM
     Indication: PRODUCT USED FOR UNKNOWN INDICATION
     Dosage: UNK UNK, UNKNOWN FREQ.
     Route: 065
  2. ZOLPIDEM [Concomitant]
     Active Substance: ZOLPIDEM\ZOLPIDEM TARTRATE
     Indication: PRODUCT USED FOR UNKNOWN INDICATION
     Dosage: UNK UNK, UNKNOWN FREQ.
     Route: 065
  3. TACROLIMUS. [Suspect]
     Active Substance: TACROLIMUS
     Indication: PANCREAS TRANSPLANT
     Dosage: UNK UNK, UNKNOWN FREQ.
     Route: 065
     Dates: start: 200607
  4. TIROSINT [Concomitant]
     Active Substance: LEVOTHYROXINE SODIUM
     Indication: PRODUCT USED FOR UNKNOWN INDICATION
     Dosage: UNK UNK, UNKNOWN FREQ.
     Route: 065

REACTIONS (49)
  - Urticaria [Unknown]
  - Paraesthesia oral [Not Recovered/Not Resolved]
  - Essential hypertension [Unknown]
  - Diarrhoea [Unknown]
  - Respiratory distress [Unknown]
  - Hypertension [Unknown]
  - Ventricular extrasystoles [Unknown]
  - Dyspnoea [Unknown]
  - Dysphagia [Unknown]
  - Panic attack [Unknown]
  - Hypomagnesaemia [Unknown]
  - Dehydration [Unknown]
  - Asthenia [Unknown]
  - Gingival bleeding [Unknown]
  - Off label use [Unknown]
  - Histamine intolerance [Unknown]
  - Food allergy [Recovered/Resolved]
  - Dyspnoea [Unknown]
  - Hypertension [Not Recovered/Not Resolved]
  - Urticaria [Unknown]
  - Hypersensitivity [Recovered/Resolved]
  - Food allergy [Unknown]
  - Blood glucose decreased [Unknown]
  - Palpitations [Unknown]
  - Angioedema [Unknown]
  - Hypersensitivity [Unknown]
  - Syncope [Unknown]
  - Tachycardia [Unknown]
  - Rash [Unknown]
  - Panic attack [Recovering/Resolving]
  - Presyncope [Unknown]
  - Food allergy [Unknown]
  - Choking sensation [Recovered/Resolved]
  - Labile hypertension [Recovering/Resolving]
  - Food allergy [Not Recovered/Not Resolved]
  - Rash [Unknown]
  - Impaired driving ability [Unknown]
  - Palpitations [Unknown]
  - Abdominal pain [Unknown]
  - Oral discomfort [Unknown]
  - Malaise [Unknown]
  - Anxiety [Not Recovered/Not Resolved]
  - Anxiety disorder [Unknown]
  - Eye disorder [Unknown]
  - Retinal tear [Unknown]
  - Drug hypersensitivity [Not Recovered/Not Resolved]
  - Rhinitis allergic [Unknown]
  - Flushing [Unknown]
  - Treatment noncompliance [Unknown]

NARRATIVE: CASE EVENT DATE: 2006
